FAERS Safety Report 12497586 (Version 1)
Quarter: 2016Q2

REPORT INFORMATION
  Report Type: Spontaneous
  Country: US (occurrence: US)
  Receive Date: 20160625
  Receipt Date: 20160625
  Transmission Date: 20160815
  Serious: No
  Sender: FDA-Public Use
  Company Number: PHEH2016US014971

PATIENT
  Age: 50 Year
  Sex: Female

DRUGS (3)
  1. PROGESTERON [Concomitant]
     Indication: PRODUCT USED FOR UNKNOWN INDICATION
     Dosage: UNK
     Route: 048
  2. VIVELLE-DOT [Suspect]
     Active Substance: ESTRADIOL
     Indication: NIGHT SWEATS
     Dosage: 0.037 MG, UNK
     Route: 062
  3. VIVELLE-DOT [Suspect]
     Active Substance: ESTRADIOL
     Indication: HOT FLUSH
     Dosage: 0.025 MG, UNK
     Route: 062

REACTIONS (4)
  - Arthralgia [Unknown]
  - Prescribed underdose [Unknown]
  - Weight increased [Unknown]
  - Treatment noncompliance [Unknown]
